FAERS Safety Report 10270698 (Version 2)
Quarter: 2014Q3

REPORT INFORMATION
  Report Type: Spontaneous
  Country: US (occurrence: US)
  Receive Date: 20140701
  Receipt Date: 20140811
  Transmission Date: 20150326
  Serious: Yes (Other)
  Sender: FDA-Public Use
  Company Number: US-PFIZER INC-2014177617

PATIENT
  Age: 73 Year
  Sex: Female
  Weight: 72.56 kg

DRUGS (2)
  1. NORVASC [Concomitant]
     Active Substance: AMLODIPINE BESYLATE
     Dosage: 5 MG, UNK
  2. LIPITOR [Suspect]
     Active Substance: ATORVASTATIN CALCIUM
     Indication: BLOOD CHOLESTEROL INCREASED
     Dosage: 10 MG, 1X/DAY
     Route: 048
     Dates: end: 2006

REACTIONS (10)
  - Optic nerve disorder [Unknown]
  - Muscle disorder [Unknown]
  - Neurotoxicity [Unknown]
  - Microvascular coronary artery disease [Unknown]
  - Nervous system disorder [Unknown]
  - Nerve injury [Unknown]
  - Cerebral palsy [Unknown]
  - Paralysis [Unknown]
  - Headache [Unknown]
  - Cerebral atrophy [Unknown]

NARRATIVE: CASE EVENT DATE: 2013
